FAERS Safety Report 25798641 (Version 2)
Quarter: 2025Q4

REPORT INFORMATION
  Report Type: Spontaneous
  Country: US (occurrence: US)
  Receive Date: 20250913
  Receipt Date: 20251101
  Transmission Date: 20260118
  Serious: No
  Sender: SOMERSET THERAPEUTICS, LLC
  Company Number: US-MIT-25-75-US-2025-SOM-SPO-00012

PATIENT

DRUGS (8)
  1. ROPIVACAINE HYDROCHLORIDE [Suspect]
     Active Substance: ROPIVACAINE HYDROCHLORIDE
     Indication: Product used for unknown indication
     Dosage: 30 ML IN 1 VIAL
     Route: 065
  2. PROPOFOL [Concomitant]
     Active Substance: PROPOFOL
     Indication: Product used for unknown indication
     Dosage: 75 MCG/KG/MIN
     Route: 065
  3. PROPOFOL [Concomitant]
     Active Substance: PROPOFOL
     Dosage: INCREASED TO 125 MCG/KG/MIN
     Route: 065
  4. PROPOFOL [Concomitant]
     Active Substance: PROPOFOL
     Dosage: BOLUS
     Route: 065
  5. PROPOFOL [Concomitant]
     Active Substance: PROPOFOL
     Dosage: BOLUS
     Route: 065
  6. PRECEDEX [Concomitant]
     Active Substance: DEXMEDETOMIDINE HYDROCHLORIDE
     Indication: Product used for unknown indication
     Route: 065
  7. FENTANYL [Concomitant]
     Active Substance: FENTANYL
     Indication: Product used for unknown indication
     Dosage: 25 MCG
     Route: 065
  8. FENTANYL [Concomitant]
     Active Substance: FENTANYL
     Dosage: 100 MCG FENTANYL IN 25 MCG BOLUSES
     Route: 065

REACTIONS (2)
  - Adverse event [Unknown]
  - Drug ineffective [Unknown]
